FAERS Safety Report 8804403 (Version 1)
Quarter: 2012Q4

REPORT INFORMATION
  Report Type: 
  Country: US (occurrence: US)
  Receive Date: 20120923
  Receipt Date: 20120923
  Transmission Date: 20130627
  Serious: No
  Sender: FDA-Public Use
  Company Number: US-TEVA-359957USA

PATIENT
  Age: 43 Year
  Sex: Female
  Weight: 58.11 kg

DRUGS (4)
  1. QVAR [Suspect]
     Dosage: 40 Microgram Daily;
     Dates: start: 20120813
  2. NASACORT AQ [Concomitant]
  3. SYNTHROID [Concomitant]
  4. VITAMIN D [Concomitant]

REACTIONS (2)
  - Fluid retention [Not Recovered/Not Resolved]
  - Depression [Not Recovered/Not Resolved]
